FAERS Safety Report 19642385 (Version 9)
Quarter: 2022Q2

REPORT INFORMATION
  Report Type: Report from Study
  Country: IE (occurrence: IE)
  Receive Date: 20210731
  Receipt Date: 20220530
  Transmission Date: 20220720
  Serious: Yes (Hospitalization, Other)
  Sender: FDA-Public Use
  Company Number: IE-TAKEDA-2020TUS057472

PATIENT
  Age: 63 Year
  Sex: Male

DRUGS (6)
  1. HUMAN IMMUNOGLOBULIN G\HYALURONIDASE RECOMBINANT HUMAN [Suspect]
     Active Substance: HUMAN IMMUNOGLOBULIN G\HYALURONIDASE RECOMBINANT HUMAN
     Indication: Primary immunodeficiency syndrome
     Dosage: 30 GRAM, Q4WEEKS
     Route: 058
     Dates: start: 20201126
  2. HUMAN IMMUNOGLOBULIN G\HYALURONIDASE RECOMBINANT HUMAN [Suspect]
     Active Substance: HUMAN IMMUNOGLOBULIN G\HYALURONIDASE RECOMBINANT HUMAN
     Indication: Graft versus host disease in skin
     Dosage: 30 GRAM, Q4WEEKS
     Route: 058
     Dates: start: 20201208
  3. HUMAN IMMUNOGLOBULIN G\HYALURONIDASE RECOMBINANT HUMAN [Suspect]
     Active Substance: HUMAN IMMUNOGLOBULIN G\HYALURONIDASE RECOMBINANT HUMAN
     Indication: Stem cell transplant
     Dosage: 30 GRAM, Q4WEEKS
     Route: 058
     Dates: start: 20201208
  4. HUMAN IMMUNOGLOBULIN G\HYALURONIDASE RECOMBINANT HUMAN [Suspect]
     Active Substance: HUMAN IMMUNOGLOBULIN G\HYALURONIDASE RECOMBINANT HUMAN
     Dosage: 30 GRAM, Q4WEEKS
     Route: 058
     Dates: start: 20201208
  5. HUMAN IMMUNOGLOBULIN G\HYALURONIDASE RECOMBINANT HUMAN [Suspect]
     Active Substance: HUMAN IMMUNOGLOBULIN G\HYALURONIDASE RECOMBINANT HUMAN
     Dosage: 30 GRAM, Q4WEEKS
     Route: 058
     Dates: start: 20201126
  6. HUMAN IMMUNOGLOBULIN G\HYALURONIDASE RECOMBINANT HUMAN [Suspect]
     Active Substance: HUMAN IMMUNOGLOBULIN G\HYALURONIDASE RECOMBINANT HUMAN
     Dosage: 30 GRAM, Q4WEEKS
     Route: 058

REACTIONS (17)
  - Vascular device infection [Recovered/Resolved]
  - Leukaemia recurrent [Not Recovered/Not Resolved]
  - Lower respiratory tract infection [Recovering/Resolving]
  - Cough [Recovering/Resolving]
  - Lethargy [Recovering/Resolving]
  - Dyspnoea [Recovering/Resolving]
  - Adverse drug reaction [Recovering/Resolving]
  - Photopheresis [Unknown]
  - Therapy cessation [Unknown]
  - COVID-19 [Recovered/Resolved]
  - Platelet count decreased [Not Recovered/Not Resolved]
  - Anxiety [Recovering/Resolving]
  - Erythema [Recovering/Resolving]
  - Infusion site swelling [Recovering/Resolving]
  - Fatigue [Unknown]
  - Infusion site erythema [Recovering/Resolving]
  - Device infusion issue [Recovered/Resolved]

NARRATIVE: CASE EVENT DATE: 20201208
